FAERS Safety Report 8200802-X (Version None)
Quarter: 2012Q1

REPORT INFORMATION
  Report Type: 
  Country: None (occurrence: None)
  Receive Date: 20120312
  Receipt Date: 20120305
  Transmission Date: 20120608
  Serious: Yes (Hospitalization, Other)
  Sender: FDA-Public Use
  Company Number: DE-ASTELLAS-2012US001768

PATIENT
  Sex: Male
  Weight: 86 kg

DRUGS (16)
  1. ENTOCORT EC [Concomitant]
     Indication: ENTERITIS
     Dosage: UNK
     Route: 065
     Dates: start: 20110423
  2. LIMPTAR N [Concomitant]
     Indication: MUSCLE SPASMS
     Dosage: UNK
     Route: 065
     Dates: start: 20110824
  3. PROMETHAZINE HCL [Concomitant]
     Indication: ANXIETY DISORDER
     Dosage: UNK
     Route: 065
     Dates: start: 20110907
  4. BEROTEC [Concomitant]
     Indication: CHRONIC OBSTRUCTIVE PULMONARY DISEASE
     Dosage: UNK
     Route: 065
     Dates: start: 20080701
  5. ERLOTINIB HYDROCHLORIDE [Suspect]
     Indication: HEPATIC NEOPLASM MALIGNANT
     Dosage: UNK
     Route: 048
     Dates: start: 20120116
  6. SORAFENIB [Suspect]
     Indication: HEPATIC NEOPLASM MALIGNANT
     Dosage: 400 MG, QOD
     Route: 048
     Dates: start: 20120116
  7. FUROSEMIDE [Concomitant]
     Indication: HYPERTENSION
     Dosage: UNK
     Route: 065
     Dates: start: 20110115
  8. FUROSEMIDE [Concomitant]
     Indication: ASCITES
  9. FLORADIX KRAEUTERBLUT MIT EISEN [Concomitant]
     Indication: NORMOCHROMIC NORMOCYTIC ANAEMIA
     Dosage: UNK
     Route: 065
     Dates: start: 20120215, end: 20120215
  10. SPIRONOLACTONE [Concomitant]
     Indication: ASCITES
     Dosage: UNK
     Route: 065
     Dates: start: 20110618
  11. NOVALGIN [Concomitant]
     Indication: PALMAR-PLANTAR ERYTHRODYSAESTHESIA SYNDROME
     Dosage: UNK
     Route: 065
     Dates: start: 20100621
  12. MAGNESIUM [Concomitant]
     Indication: MUSCLE SPASMS
     Dosage: UNK
     Route: 065
     Dates: start: 20110517
  13. ACTRAPID [Concomitant]
     Indication: DIABETES MELLITUS
     Dosage: UNK
     Route: 065
     Dates: start: 20100301
  14. TEMAZEP [Concomitant]
     Indication: INSOMNIA
     Dosage: UNK
     Route: 065
     Dates: start: 20110530
  15. TINCTURA THEBAICA [Concomitant]
     Indication: DIARRHOEA
     Dosage: UNK
     Route: 065
     Dates: start: 20111121
  16. SPIRIVA [Concomitant]
     Indication: CHRONIC OBSTRUCTIVE PULMONARY DISEASE
     Dosage: UNK
     Route: 065
     Dates: start: 20080701

REACTIONS (6)
  - PLATELET COUNT DECREASED [None]
  - GASTRITIS EROSIVE [None]
  - OFF LABEL USE [None]
  - MELAENA [None]
  - WHITE BLOOD CELL COUNT DECREASED [None]
  - METASTASES TO ABDOMINAL CAVITY [None]
